FAERS Safety Report 5048695-6 (Version None)
Quarter: 2006Q3

REPORT INFORMATION
  Report Type: 
  Country: None (occurrence: None)
  Receive Date: 20060712
  Receipt Date: 20060317
  Transmission Date: 20061208
  Serious: Yes (Hospitalization)
  Sender: FDA-Public Use
  Company Number: HQWYE479423MAR06

PATIENT
  Sex: Male

DRUGS (3)
  1. ENBREL [Suspect]
     Indication: RHEUMATOID ARTHRITIS
     Route: 058
     Dates: start: 20050621, end: 20060601
  2. PREDONINE [Concomitant]
     Route: 048
     Dates: end: 20060124
  3. RHEUMATREX [Concomitant]
     Route: 048

REACTIONS (2)
  - PLEURAL EFFUSION [None]
  - PLEURISY [None]
